FAERS Safety Report 7738793-8 (Version None)
Quarter: 2011Q3

REPORT INFORMATION
  Report Type: 
  Country: None (occurrence: None)
  Receive Date: 20110908
  Receipt Date: 20110826
  Transmission Date: 20111222
  Serious: Yes (Hospitalization)
  Sender: FDA-Public Use
  Company Number: US-MYLANLABS-2011S1018295

PATIENT
  Age: 42 Year
  Sex: Female

DRUGS (5)
  1. DULOXETIME HYDROCHLORIDE [Interacting]
     Dosage: 20 MG DAILY
     Route: 065
  2. KETAMINE HCL [Suspect]
     Indication: COMPLEX REGIONAL PAIN SYNDROME
     Dosage: TITRATED FROM 10-20 MG/HOUR OVER A 5-DAY PERIOD
     Route: 042
  3. MIRTAZAPINE [Concomitant]
     Dosage: 45MG QHS
     Route: 065
  4. QUETIAPINE [Concomitant]
     Dosage: 100MG QHS
     Route: 065
  5. DULOXETIME HYDROCHLORIDE [Interacting]
     Dosage: 60MG
     Route: 065

REACTIONS (4)
  - SUICIDAL IDEATION [None]
  - DRUG INTERACTION [None]
  - MANIA [None]
  - OFF LABEL USE [None]
